FAERS Safety Report 17568639 (Version 2)
Quarter: 2020Q3

REPORT INFORMATION
  Report Type: Other
  Country: GB (occurrence: GB)
  Receive Date: 20200321
  Receipt Date: 20200812
  Transmission Date: 20201102
  Serious: Yes (Congenital Anomaly, Other)
  Sender: FDA-Public Use
  Company Number: GB-MACLEODS PHARMACEUTICALS US LTD-MAC2020025776

PATIENT

DRUGS (2)
  1. EMTRICITABINE + TENOFOVIR [Suspect]
     Active Substance: EMTRICITABINE\TENOFOVIR
     Indication: PRODUCT USED FOR UNKNOWN INDICATION
     Dosage: UNK, 1 COURSE, TAB/CAPS, TENOFOVIR DISOPROXIL FUMARATE/EMTRICITABINE
     Route: 064
  2. NEVIRAPINE 400 MG [Suspect]
     Active Substance: NEVIRAPINE
     Indication: PRODUCT USED FOR UNKNOWN INDICATION
     Dosage: 400 MILLIGRAM, QD, 1 COURSE, UNKNOWN TRIMESTER
     Route: 064

REACTIONS (3)
  - Foetal exposure during pregnancy [Unknown]
  - Speech disorder developmental [Unknown]
  - Developmental delay [Unknown]
